FAERS Safety Report 9364442 (Version 6)
Quarter: 2014Q2

REPORT INFORMATION
  Report Type: Report from Study
  Country: JP (occurrence: JP)
  Receive Date: 20130624
  Receipt Date: 20140417
  Transmission Date: 20141212
  Serious: Yes (Hospitalization)
  Sender: FDA-Public Use
  Company Number: JP-PFIZER INC-2013182533

PATIENT
  Age: 77 Year
  Sex: Female
  Weight: 47.7 kg

DRUGS (9)
  1. XALKORI [Suspect]
     Indication: NON-SMALL CELL LUNG CANCER
     Dosage: 250 MG, 2X/DAY
     Route: 048
     Dates: start: 20121218, end: 20121224
  2. OLMETEC [Concomitant]
     Dosage: 20 MG, 1X/DAY
     Route: 048
     Dates: end: 20121228
  3. AMLODIPINE [Concomitant]
     Dosage: 5 MG, 1X/DAY
     Route: 048
     Dates: end: 20121230
  4. CARDENALIN [Concomitant]
     Dosage: 4 MG, 1X/DAY
     Route: 048
  5. CRESTOR [Concomitant]
     Dosage: 2.5 MG, 1X/DAY
     Route: 048
     Dates: end: 20121230
  6. PRIMPERAN [Concomitant]
     Dosage: 5 MG, 3X/DAY
     Route: 048
     Dates: start: 20121218, end: 20121227
  7. MAGMITT [Concomitant]
     Dosage: 330 MG, 3X/DAY
     Route: 048
     Dates: start: 20121222, end: 20121229
  8. ZOFRAN [Concomitant]
     Dosage: 4 MG, 1X/DAY
     Route: 048
     Dates: start: 20121223, end: 20121225
  9. ZOMETA [Concomitant]
     Dosage: 4 MG, 1X/DAY
     Route: 042

REACTIONS (2)
  - Nausea [Recovered/Resolved]
  - Blood creatinine increased [Recovering/Resolving]
